FAERS Safety Report 6917575-0 (Version None)
Quarter: 2010Q3

REPORT INFORMATION
  Report Type: 
  Country: None (occurrence: None)
  Receive Date: 20100810
  Receipt Date: 20100804
  Transmission Date: 20110219
  Serious: Yes (Other)
  Sender: FDA-Public Use
  Company Number: US-CEPHALON-2009006039

PATIENT
  Age: 75 Year
  Sex: Male

DRUGS (8)
  1. TREANDA [Suspect]
     Indication: B-CELL LYMPHOMA
  2. TREANDA [Suspect]
     Route: 042
  3. RITUXIMAB [Suspect]
  4. ALLOPURINOL [Suspect]
     Dates: start: 20090202
  5. VALSARTAN [Concomitant]
  6. DOCUSATE SODIUM [Concomitant]
  7. ACETAMINOPHEN [Concomitant]
  8. LORATADINE [Concomitant]

REACTIONS (1)
  - DRUG ERUPTION [None]
